FAERS Safety Report 7878246-X (Version None)
Quarter: 2011Q4

REPORT INFORMATION
  Report Type: 
  Country: None (occurrence: None)
  Receive Date: 20111027
  Receipt Date: 20111021
  Transmission Date: 20120403
  Serious: Yes (Death)
  Sender: FDA-Public Use
  Company Number: 2011SP049924

PATIENT
  Age: 54 Year
  Sex: Female

DRUGS (1)
  1. TEMODAR [Suspect]
     Indication: MALIGNANT MELANOMA
     Dosage: 100 MG, QD, PO
     Route: 048

REACTIONS (1)
  - DEATH [None]
